FAERS Safety Report 8200466-5 (Version None)
Quarter: 2012Q1

REPORT INFORMATION
  Report Type: 
  Country: None (occurrence: None)
  Receive Date: 20120306
  Receipt Date: 20120221
  Transmission Date: 20120608
  Serious: Yes (Other)
  Sender: FDA-Public Use
  Company Number: 12-121

PATIENT
  Sex: Female
  Weight: 59 kg

DRUGS (4)
  1. COMBIVENT (IPRATROPIUM BROMIDE, SALBUTAMOL) [Concomitant]
  2. ALEVE [Suspect]
     Indication: BACK PAIN
     Dosage: 1DF / TID / ORAL
     Route: 048
     Dates: start: 20111201
  3. ALEVE [Suspect]
     Indication: BACK PAIN
     Dosage: 1DF / TID / ORAL
     Route: 048
     Dates: start: 20120219, end: 20120219
  4. SYMBICORT [Concomitant]

REACTIONS (2)
  - FOREIGN BODY [None]
  - COUGH [None]
